FAERS Safety Report 4350623-3 (Version None)
Quarter: 2004Q2

REPORT INFORMATION
  Report Type: 
  Country: None (occurrence: None)
  Receive Date: 20040427
  Receipt Date: 20040420
  Transmission Date: 20050107
  Serious: Yes (Hospitalization)
  Sender: FDA-Public Use
  Company Number: STA-AE-04-MTX-097

PATIENT
  Age: 32 Year
  Sex: Female

DRUGS (4)
  1. METHOTREXATE [Suspect]
     Indication: PSORIASIS
     Dosage: 15 MG 1X PER 1 WK, ORAL
     Route: 048
     Dates: end: 20040209
  2. HYPEN (ETODOLAC) [Concomitant]
  3. PARIET (RABEPRAZOLE) [Concomitant]
  4. PARIET (RABEPRAZOLE) [Concomitant]

REACTIONS (4)
  - AGRANULOCYTOSIS [None]
  - LEUKOPENIA [None]
  - LYMPHOCYTE STIMULATION TEST POSITIVE [None]
  - PLATELET COUNT DECREASED [None]
